FAERS Safety Report 26128985 (Version 2)
Quarter: 2025Q4

REPORT INFORMATION
  Report Type: Spontaneous
  Country: IN (occurrence: IN)
  Receive Date: 20251208
  Receipt Date: 20251211
  Transmission Date: 20260118
  Serious: Yes (Other)
  Sender: HETERO
  Company Number: IN-HETERO-HET2025IN07313

PATIENT
  Age: 56 Year
  Sex: Male
  Weight: 80.5 kg

DRUGS (6)
  1. IVABRADINE [Suspect]
     Active Substance: IVABRADINE
     Indication: Product used for unknown indication
     Dosage: UNK, QD (1/2 TABLET ONCE A DAY)
     Route: 048
  2. BISOPROLOL FUMARATE [Concomitant]
     Active Substance: BISOPROLOL FUMARATE
     Indication: Product used for unknown indication
     Dosage: UNK
     Route: 065
  3. FEBUXOSTAT [Concomitant]
     Active Substance: FEBUXOSTAT
     Indication: Product used for unknown indication
     Dosage: UNK
     Route: 065
  4. S VOCITA PLUS [Concomitant]
     Indication: Product used for unknown indication
     Dosage: UNK
     Route: 065
  5. JUSTOZA [Concomitant]
     Indication: Product used for unknown indication
     Dosage: UNK
     Route: 065
  6. SPINFREE [Concomitant]
     Indication: Product used for unknown indication
     Dosage: UNK
     Route: 065

REACTIONS (2)
  - Typhoid fever [Not Recovered/Not Resolved]
  - Wrong technique in product usage process [Unknown]
